FAERS Safety Report 25384856 (Version 1)
Quarter: 2025Q2

REPORT INFORMATION
  Report Type: Spontaneous
  Country: US (occurrence: None)
  Receive Date: 20250527
  Receipt Date: 20250527
  Transmission Date: 20250716
  Serious: Yes (Hospitalization, Disabling)
  Sender: FDA-CTU
  Company Number: None

PATIENT
  Age: 65 Year
  Sex: Female
  Weight: 43.6 kg

DRUGS (14)
  1. KEYTRUDA [Suspect]
     Active Substance: PEMBROLIZUMAB
     Indication: Breast cancer stage III
     Route: 042
     Dates: start: 20240625, end: 20241029
  2. ADRIAMYCIN [Concomitant]
     Active Substance: DOXORUBICIN HYDROCHLORIDE
     Dates: start: 20240625, end: 20240806
  3. CYTOXAN [Suspect]
     Active Substance: CYCLOPHOSPHAMIDE
  4. TAXOL [Concomitant]
     Active Substance: PACLITAXEL
  5. CARBOPLATIN [Concomitant]
     Active Substance: CARBOPLATIN
  6. NEULASTA [Concomitant]
     Active Substance: PEGFILGRASTIM
  7. ZYPREXA [Concomitant]
     Active Substance: OLANZAPINE
  8. ZOFRAN [Concomitant]
     Active Substance: ONDANSETRON HYDROCHLORIDE
  9. DECADRON [Concomitant]
     Active Substance: DEXAMETHASONE
  10. PRISTIQ EXTENDED-RELEASE [Concomitant]
     Active Substance: DESVENLAFAXINE SUCCINATE
  11. EVEKEO [Concomitant]
     Active Substance: AMPHETAMINE SULFATE
  12. QUETIAPINE [Concomitant]
     Active Substance: QUETIAPINE
  13. TRAZODONE [Concomitant]
     Active Substance: TRAZODONE HYDROCHLORIDE
  14. VITAMINS [Concomitant]
     Active Substance: VITAMINS

REACTIONS (9)
  - Diarrhoea [None]
  - Nutritional condition abnormal [None]
  - Pyrexia [None]
  - Hyponatraemia [None]
  - Weight decreased [None]
  - Urinary tract infection enterococcal [None]
  - Hyperglycaemia [None]
  - Immune-mediated adrenal insufficiency [None]
  - Diverticulitis [None]

NARRATIVE: CASE EVENT DATE: 20250116
